FAERS Safety Report 18898775 (Version 1)
Quarter: 2021Q1

REPORT INFORMATION
  Report Type: Spontaneous
  Country: US (occurrence: US)
  Receive Date: 20210216
  Receipt Date: 20210216
  Transmission Date: 20210420
  Serious: No
  Sender: FDA-Public Use
  Company Number: US-CELLTRION INC.-2021US000825

PATIENT

DRUGS (2)
  1. TRUXIMA [Suspect]
     Active Substance: RITUXIMAB-ABBS
     Indication: SYSTEMIC LUPUS ERYTHEMATOSUS
     Dosage: 500 MG, ONCE WEEKLY X2
     Route: 042
     Dates: start: 20210111
  2. TRUXIMA [Suspect]
     Active Substance: RITUXIMAB-ABBS
     Indication: ANTI-NEUTROPHIL CYTOPLASMIC ANTIBODY POSITIVE VASCULITIS
     Dosage: 500 MG, ONCE WEEKLY X2
     Route: 042
     Dates: start: 20210104

REACTIONS (4)
  - Flushing [Recovered/Resolved]
  - Feeling hot [Recovered/Resolved]
  - Off label use [Unknown]
  - Underdose [Unknown]

NARRATIVE: CASE EVENT DATE: 20210104
